FAERS Safety Report 7197988-5 (Version None)
Quarter: 2010Q4

REPORT INFORMATION
  Report Type: 
  Country: None (occurrence: None)
  Receive Date: 20101227
  Receipt Date: 20101214
  Transmission Date: 20110411
  Serious: Yes (Other)
  Sender: FDA-Public Use
  Company Number: JP-ROCHE-749141

PATIENT
  Sex: Female

DRUGS (5)
  1. AVASTIN [Suspect]
     Indication: LARGE INTESTINE CARCINOMA
     Dosage: NOTE: UNCERTAIN DOSAGE AND THE 13TH.
     Route: 041
  2. IRINOTECAN HYDROCHLORIDE [Concomitant]
     Dosage: DOSAGE IS UNCERTAIN
     Route: 041
  3. CALCIUM LEVOFOLINATE [Concomitant]
     Dosage: DOSAGE IS UNCERTAIN
     Route: 041
  4. FLUOROURACIL [Concomitant]
     Dosage: ROUTE: INTRAVENOUS BOLUS, DOSAGE IS UNCERTAIN
     Route: 042
  5. FLUOROURACIL [Concomitant]
     Dosage: ROUTE: INTRAVENOUS DRIP, DOSAGE IS UNCERTAIN
     Route: 042

REACTIONS (2)
  - BLOOD CREATINE PHOSPHOKINASE INCREASED [None]
  - BLOOD POTASSIUM DECREASED [None]
